FAERS Safety Report 9375829 (Version 1)
Quarter: 2013Q2

REPORT INFORMATION
  Report Type: Spontaneous
  Country: US (occurrence: US)
  Receive Date: 20130628
  Receipt Date: 20130628
  Transmission Date: 20140414
  Serious: No
  Sender: FDA-Public Use
  Company Number: US-PFIZER INC-2013189473

PATIENT
  Age: 53 Year
  Sex: Female
  Weight: 56.69 kg

DRUGS (2)
  1. LYRICA [Suspect]
     Indication: FIBROMYALGIA
     Dosage: 25MG ONE OR TWO TIMES A DAY
     Route: 048
     Dates: start: 2012
  2. IMIPRAMINE [Concomitant]
     Dosage: UNK

REACTIONS (1)
  - Urine odour abnormal [Not Recovered/Not Resolved]
